FAERS Safety Report 9149532 (Version 1)
Quarter: 2013Q1

REPORT INFORMATION
  Report Type: Spontaneous
  Country: US (occurrence: None)
  Receive Date: 20130228
  Receipt Date: 20130228
  Transmission Date: 20140127
  Serious: Yes (Hospitalization)
  Sender: FDA-Public Use
  Company Number: None

PATIENT
  Age: 61 Year
  Sex: Male

DRUGS (1)
  1. HEPARIN [Suspect]
     Indication: PROPHYLAXIS
     Dosage: 5000 UNITS SQ
     Route: 058
     Dates: start: 20121207, end: 20121210

REACTIONS (6)
  - Leukopenia [None]
  - Heparin-induced thrombocytopenia test positive [None]
  - Dysuria [None]
  - Blood urine present [None]
  - Infusion site bruising [None]
  - Thrombocytopenia [None]
